FAERS Safety Report 4320111-9 (Version None)
Quarter: 2004Q1

REPORT INFORMATION
  Report Type: 
  Country: None (occurrence: None)
  Receive Date: 20040317
  Receipt Date: 20040305
  Transmission Date: 20041129
  Serious: Yes (Death, Hospitalization)
  Sender: FDA-Public Use
  Company Number: NSADSS2002007993

PATIENT
  Age: 67 Year
  Sex: Female

DRUGS (13)
  1. REMICADE [Suspect]
     Indication: RHEUMATOID ARTHRITIS
     Dosage: 1 IN 1 AS NECESSARY, INTRAVENOUS DRIP
     Route: 041
     Dates: start: 20010607, end: 20040607
  2. PREDNISONE [Concomitant]
  3. PLAQUENIL [Concomitant]
  4. FOLIC ACID [Concomitant]
  5. SYNTHROID [Concomitant]
  6. TRAZODONE HCL [Concomitant]
  7. ASPIRIN [Concomitant]
  8. CELEBREX [Concomitant]
  9. METHOTREXATE [Concomitant]
  10. FOSAMAX [Concomitant]
  11. PREMARIN [Concomitant]
  12. ALBUTEROL [Concomitant]
  13. PRILOSEC [Concomitant]

REACTIONS (9)
  - ACINETOBACTER INFECTION [None]
  - BASAL CELL CARCINOMA [None]
  - BRONCHIECTASIS [None]
  - BRONCHITIS CHRONIC [None]
  - CONDITION AGGRAVATED [None]
  - DRUG EFFECT DECREASED [None]
  - LUNG INFECTION PSEUDOMONAL [None]
  - PNEUMONIA BACTERIAL [None]
  - PNEUMONITIS [None]
